FAERS Safety Report 5206366-7 (Version None)
Quarter: 2006Q4

REPORT INFORMATION
  Report Type: 
  Country: None (occurrence: None)
  Receive Date: 20061026
  Receipt Date: 20060814
  Transmission Date: 20070319
  Serious: Yes (Other)
  Sender: FDA-Public Use
  Company Number: 2006099409

PATIENT
  Sex: Female

DRUGS (1)
  1. LYRICA [Suspect]
     Indication: NERVE INJURY
     Dates: start: 20050901

REACTIONS (5)
  - DISTURBANCE IN ATTENTION [None]
  - INSOMNIA [None]
  - SUICIDAL IDEATION [None]
  - VISION BLURRED [None]
  - WEIGHT INCREASED [None]
